FAERS Safety Report 8080668-1 (Version None)
Quarter: 2012Q1

REPORT INFORMATION
  Report Type: 
  Country: None (occurrence: None)
  Receive Date: 20120130
  Receipt Date: 20120123
  Transmission Date: 20120608
  Serious: Yes (Other)
  Sender: FDA-Public Use
  Company Number: PHHY2012AR006476

PATIENT
  Age: 73 Year
  Sex: Male

DRUGS (1)
  1. EXFORGE HCT [Suspect]
     Indication: HYPERTENSION
     Dosage: 1 DF (320/10/12.5 MG) DAILY
     Dates: start: 20111101

REACTIONS (3)
  - OPTIC NEURITIS [None]
  - SCOTOMA [None]
  - HYPOTENSION [None]
